FAERS Safety Report 8712620 (Version 3)
Quarter: 2013Q2

REPORT INFORMATION
  Report Type: Spontaneous
  Country: US (occurrence: US)
  Receive Date: 20120808
  Receipt Date: 20130429
  Transmission Date: 20140414
  Serious: Yes (Hospitalization, Other)
  Sender: FDA-Public Use
  Company Number: US-BAYER-2012-077774

PATIENT
  Age: 48 Year
  Sex: Female
  Weight: 85.26 kg

DRUGS (9)
  1. YASMIN [Suspect]
     Indication: CONTRACEPTION
     Dosage: UNK
     Dates: start: 20080614, end: 200908
  2. OCELLA [Suspect]
     Indication: CONTRACEPTION
     Dosage: UNK
     Dates: start: 200806, end: 200908
  3. WELLBUTRIN [Concomitant]
     Indication: DEPRESSION
     Dosage: UNK
     Dates: start: 200310, end: 200612
  4. PROZAC [Concomitant]
     Indication: DEPRESSION
     Dosage: 40 MG, QD
     Dates: start: 2005, end: 2012
  5. ZOLOFT [Concomitant]
     Indication: DEPRESSION
     Dosage: UNK
     Dates: start: 200310, end: 200608
  6. SPRINTEC [Concomitant]
     Indication: CONTRACEPTION
  7. PREMARIN [Concomitant]
  8. KARIVA [Concomitant]
     Indication: CONTRACEPTION
  9. KARIVA [Concomitant]
     Indication: HEADACHE

REACTIONS (14)
  - Acute myocardial infarction [None]
  - Cerebrovascular accident [None]
  - Pain [None]
  - Injury [None]
  - General physical health deterioration [None]
  - Emotional distress [None]
  - Anxiety [None]
  - Pain [None]
  - Chest pain [None]
  - Dyspnoea [None]
  - Hyperhidrosis [None]
  - Asthenia [None]
  - Pain in jaw [None]
  - Chest discomfort [None]
